FAERS Safety Report 19209701 (Version 4)
Quarter: 2021Q4

REPORT INFORMATION
  Report Type: Spontaneous
  Country: US (occurrence: US)
  Receive Date: 20210504
  Receipt Date: 20211022
  Transmission Date: 20220304
  Serious: No
  Sender: FDA-Public Use
  Company Number: US-BRISTOL-MYERS SQUIBB COMPANY-BMS-2021-043272

PATIENT
  Age: 51 Year
  Sex: Female

DRUGS (2)
  1. ORENCIA [Suspect]
     Active Substance: ABATACEPT
     Indication: Rheumatoid arthritis
     Dosage: 125 MILLIGRAM, QWK
     Route: 058
     Dates: start: 202008
  2. ORENCIA [Suspect]
     Active Substance: ABATACEPT
     Indication: Pilonidal cyst
     Dosage: 125 MILLIGRAM, QWK
     Route: 058
     Dates: start: 20210825

REACTIONS (4)
  - Joint swelling [Unknown]
  - Arthralgia [Unknown]
  - COVID-19 [Unknown]
  - Pain [Unknown]
